FAERS Safety Report 3981519 (Version 5)
Quarter: 2014Q3

REPORT INFORMATION
  Report Type: Spontaneous
  Country: JP (occurrence: JP)
  Receive Date: 20030808
  Receipt Date: 20140817
  Transmission Date: 20150326
  Serious: Yes (Hospitalization)
  Sender: FDA-Public Use
  Company Number: PHBS2003JP06549

PATIENT
  Age: 39 Year
  Sex: Female
  Weight: 60.5 kg

DRUGS (7)
  1. VALTREX [Concomitant]
     Active Substance: VALACYCLOVIR HYDROCHLORIDE
     Dosage: 3 G, PER DAY
     Route: 048
     Dates: start: 20030219, end: 20030225
  2. ULCERLMIN [Concomitant]
     Active Substance: SUCRALFATE
     Dosage: 3 G, PER DAY
     Route: 048
     Dates: start: 20030226, end: 20030506
  3. GLIVEC [Suspect]
     Active Substance: IMATINIB MESYLATE
     Indication: CHRONIC MYELOID LEUKAEMIA
     Dosage: 400 MG, QD
     Route: 048
     Dates: start: 20030102, end: 20030609
  4. SELBEX [Concomitant]
     Active Substance: TEPRENONE
     Dosage: 3 DF, PER DAY
     Route: 048
     Dates: start: 20030423, end: 20030610
  5. CRAVIT [Concomitant]
     Active Substance: LEVOFLOXACIN
     Dosage: 200 MG, PER DAY
     Route: 048
     Dates: start: 20030607, end: 20030610
  6. LOXONIN [Concomitant]
     Active Substance: LOXOPROFEN SODIUM
     Dosage: 3 DF, PER DAY
     Route: 048
     Dates: start: 20030226, end: 20030304
  7. PL GRAN. [Concomitant]
     Active Substance: UNSPECIFIED INGREDIENT
     Dosage: 3 G, PER DAY
     Route: 048
     Dates: start: 20030607, end: 20030610

REACTIONS (17)
  - Blood lactate dehydrogenase increased [Recovered/Resolved]
  - Vomiting [Unknown]
  - Hepatic vein occlusion [Recovered/Resolved]
  - Prothrombin time prolonged [Recovered/Resolved]
  - Haematemesis [Recovered/Resolved]
  - Mallory-Weiss syndrome [Recovered/Resolved]
  - Alanine aminotransferase increased [Recovered/Resolved]
  - Anaemia [Unknown]
  - Aspartate aminotransferase increased [Recovered/Resolved]
  - Nausea [Recovered/Resolved]
  - Upper respiratory tract infection [Unknown]
  - Liver tenderness [Recovered/Resolved]
  - Fatigue [Recovered/Resolved]
  - Coagulopathy [Recovered/Resolved]
  - Hepatic function abnormal [Recovered/Resolved]
  - Blood bilirubin increased [Recovered/Resolved]
  - Leukopenia [Unknown]

NARRATIVE: CASE EVENT DATE: 20030409
